FAERS Safety Report 4622861-3 (Version None)
Quarter: 2005Q1

REPORT INFORMATION
  Report Type: 
  Country: None (occurrence: None)
  Receive Date: 20050330
  Receipt Date: 20050318
  Transmission Date: 20050727
  Serious: Yes (Hospitalization)
  Sender: FDA-Public Use
  Company Number: 397604

PATIENT
  Age: 75 Year
  Sex: Male

DRUGS (7)
  1. ARTIST [Suspect]
     Indication: ANGINA PECTORIS
     Dosage: 2.5MG PER DAY
     Route: 048
     Dates: start: 20041022
  2. ASPIRIN [Suspect]
     Indication: ANGINA PECTORIS
     Dosage: 100MG PER DAY
     Route: 048
     Dates: start: 20041022, end: 20050131
  3. WARFARIN SODIUM [Suspect]
     Indication: CORONARY ARTERY SURGERY
     Dosage: 4MG PER DAY
     Route: 048
     Dates: start: 20041124, end: 20050122
  4. DIOVAN [Suspect]
     Indication: CARDIAC FAILURE
     Dosage: 80MG PER DAY
     Route: 048
     Dates: start: 20041201, end: 20050122
  5. LASIX [Suspect]
     Indication: CARDIAC FAILURE
     Dosage: 40MG PER DAY
     Route: 048
     Dates: start: 20041022, end: 20050131
  6. GASTROM [Suspect]
     Dosage: 3G PER DAY
     Route: 048
     Dates: start: 20041124, end: 20050122
  7. ZYLORIC [Suspect]
     Indication: HYPERURICAEMIA
     Dosage: 100MG PER DAY
     Route: 048
     Dates: start: 20041210, end: 20050122

REACTIONS (10)
  - ALANINE AMINOTRANSFERASE INCREASED [None]
  - ASPARTATE AMINOTRANSFERASE INCREASED [None]
  - BLOOD ALKALINE PHOSPHATASE INCREASED [None]
  - BLOOD LACTATE DEHYDROGENASE INCREASED [None]
  - HAEMATOCRIT DECREASED [None]
  - HAEMOGLOBIN DECREASED [None]
  - HEPATIC FUNCTION ABNORMAL [None]
  - RASH GENERALISED [None]
  - RED BLOOD CELL COUNT DECREASED [None]
  - THROMBOCYTOPENIA [None]
